FAERS Safety Report 8323205-6 (Version None)
Quarter: 2012Q2

REPORT INFORMATION
  Report Type: 
  Country: None (occurrence: None)
  Receive Date: 20120430
  Receipt Date: 20120423
  Transmission Date: 20120825
  Serious: Yes (Hospitalization)
  Sender: FDA-Public Use
  Company Number: JP-ABBOTT-12P-087-0927966-00

PATIENT
  Sex: Female
  Weight: 61 kg

DRUGS (3)
  1. LANSOPRAZOLE [Concomitant]
     Indication: HELICOBACTER INFECTION
     Route: 048
     Dates: start: 20120321, end: 20120328
  2. AMOXICILLIN [Suspect]
     Indication: HELICOBACTER INFECTION
     Route: 048
     Dates: start: 20120321, end: 20120328
  3. CLARITHROMYCIN [Suspect]
     Indication: HELICOBACTER INFECTION
     Route: 048
     Dates: start: 20120321, end: 20120328

REACTIONS (1)
  - ERYTHEMA MULTIFORME [None]
